FAERS Safety Report 6184007-2 (Version None)
Quarter: 2009Q2

REPORT INFORMATION
  Report Type: 
  Country: None (occurrence: None)
  Receive Date: 20090508
  Receipt Date: 20090423
  Transmission Date: 20091009
  Serious: Yes (Other)
  Sender: FDA-Public Use
  Company Number: JP-PFIZER INC-2009203918

PATIENT
  Age: 66 Year

DRUGS (3)
  1. MIGLITOL [Suspect]
     Indication: TYPE 2 DIABETES MELLITUS
     Dosage: 150 MG, UNK
     Route: 048
     Dates: start: 20071205, end: 20080418
  2. URSO 250 [Concomitant]
     Dosage: 600 MG, UNK
     Route: 048
     Dates: start: 19980506, end: 20080521
  3. MITIGLINIDE [Concomitant]
     Indication: TYPE 2 DIABETES MELLITUS
     Dosage: 30 MG, UNK
     Route: 048
     Dates: start: 20060509, end: 20080205

REACTIONS (1)
  - DUODENAL NEOPLASM [None]
